FAERS Safety Report 19085949 (Version 2)
Quarter: 2021Q2

REPORT INFORMATION
  Report Type: Report from Study
  Country: TR (occurrence: TR)
  Receive Date: 20210402
  Receipt Date: 20210630
  Transmission Date: 20210717
  Serious: Yes (Other)
  Sender: FDA-Public Use
  Company Number: TR-REGENERON PHARMACEUTICALS, INC.-2021-38868

PATIENT

DRUGS (1)
  1. EYLEA [Suspect]
     Active Substance: AFLIBERCEPT
     Indication: NEOVASCULAR AGE-RELATED MACULAR DEGENERATION
     Dosage: 2MG, PATIENT RECEIVED 2 INJECTIONS BEFORE IOI (OS)
     Route: 031

REACTIONS (4)
  - Vitritis [Recovered/Resolved]
  - Eye inflammation [Recovered/Resolved]
  - Anterior chamber flare [Recovered/Resolved]
  - Blindness [Recovered/Resolved]
